FAERS Safety Report 7360955-2 (Version None)
Quarter: 2011Q1

REPORT INFORMATION
  Report Type: 
  Country: None (occurrence: None)
  Receive Date: 20110315
  Receipt Date: 20110315
  Transmission Date: 20110831
  Serious: No
  Sender: FDA-Public Use
  Company Number: None

PATIENT
  Age: 6 Year
  Sex: Male
  Weight: 35.1 kg

DRUGS (2)
  1. PRIVIGEN [Suspect]
  2. PRIVIGEN [Suspect]
     Indication: THROMBOCYTOPENIA
     Dosage: 35 GRAMS ONCE IV
     Route: 042

REACTIONS (1)
  - HEADACHE [None]
